FAERS Safety Report 8537937-8 (Version None)
Quarter: 2012Q3

REPORT INFORMATION
  Report Type: 
  Country: None (occurrence: None)
  Receive Date: 20120725
  Receipt Date: 20120724
  Transmission Date: 20120928
  Serious: Yes (Other)
  Sender: FDA-Public Use
  Company Number: DE-GLAXOSMITHKLINE-D0076462A

PATIENT
  Sex: Female

DRUGS (1)
  1. ZYBAN [Suspect]
     Dosage: 150MG UNKNOWN
     Route: 048

REACTIONS (4)
  - COAGULOPATHY [None]
  - LYMPHADENOPATHY [None]
  - RASH [None]
  - MUCOSAL HAEMORRHAGE [None]
